FAERS Safety Report 24302573 (Version 2)
Quarter: 2024Q3

REPORT INFORMATION
  Report Type: Spontaneous
  Country: US (occurrence: US)
  Receive Date: 20240910
  Receipt Date: 20240927
  Transmission Date: 20241017
  Serious: Yes (Hospitalization, Other)
  Sender: VERTEX
  Company Number: US-VERTEX PHARMACEUTICALS-2024-014221

PATIENT

DRUGS (1)
  1. ELEXACAFTOR\IVACAFTOR\TEZACAFTOR [Suspect]
     Active Substance: ELEXACAFTOR\IVACAFTOR\TEZACAFTOR
     Indication: Cystic fibrosis
     Dosage: UNKNOWN DOSAGE REGIMEN
     Route: 048
     Dates: start: 2020

REACTIONS (8)
  - Haemoptysis [Recovered/Resolved]
  - Transplant [Unknown]
  - Mental disorder [Unknown]
  - Productive cough [Not Recovered/Not Resolved]
  - Aspergillus infection [Unknown]
  - Negative thoughts [Recovered/Resolved]
  - Sinus disorder [Recovered/Resolved]
  - Weight abnormal [Recovered/Resolved]
